FAERS Safety Report 5006792-5 (Version None)
Quarter: 2006Q2

REPORT INFORMATION
  Report Type: 
  Country: None (occurrence: None)
  Receive Date: 20060516
  Receipt Date: 20060508
  Transmission Date: 20061013
  Serious: No
  Sender: FDA-Public Use
  Company Number: MEDI-0004417

PATIENT
  Sex: Female

DRUGS (8)
  1. SYNAGIS [Suspect]
     Indication: ANTIVIRAL PROPHYLAXIS
     Dosage: 38 MG, 1 IN 30 D, INTRAMUSCULAR; SEE IMAGE
     Route: 030
     Dates: start: 20031216, end: 20031216
  2. SYNAGIS [Suspect]
     Indication: ANTIVIRAL PROPHYLAXIS
     Dosage: 38 MG, 1 IN 30 D, INTRAMUSCULAR; SEE IMAGE
     Route: 030
     Dates: start: 20040312, end: 20040312
  3. SYNAGIS [Suspect]
     Indication: ANTIVIRAL PROPHYLAXIS
     Dosage: 38 MG, 1 IN 30 D, INTRAMUSCULAR; SEE IMAGE
     Route: 030
     Dates: start: 20040116
  4. SYNAGIS [Suspect]
     Indication: ANTIVIRAL PROPHYLAXIS
     Dosage: 38 MG, 1 IN 30 D, INTRAMUSCULAR; SEE IMAGE
     Route: 030
     Dates: start: 20040213
  5. RETINOL (RETINOL) [Concomitant]
  6. CALCIFEROL (ERGOCALCIFEROL) [Concomitant]
  7. FERRIC PYROPHOSPHATE (FERRIC PYROPHOSPHATE) [Concomitant]
  8. ALFACALCIDOL (ALFACALCIDOL) [Concomitant]

REACTIONS (1)
  - FALL [None]
